FAERS Safety Report 23561447 (Version 2)
Quarter: 2024Q1

REPORT INFORMATION
  Report Type: Report from Study
  Country: GR (occurrence: GR)
  Receive Date: 20240224
  Receipt Date: 20240312
  Transmission Date: 20240410
  Serious: Yes (Death)
  Sender: FDA-Public Use
  Company Number: GR-TEVA-VS-3159909

PATIENT
  Age: 6 Year
  Sex: Female

DRUGS (2)
  1. VINCRISTINE [Suspect]
     Active Substance: VINCRISTINE
     Indication: Optic glioma
     Route: 065
  2. CARBOPLATIN [Suspect]
     Active Substance: CARBOPLATIN
     Indication: Optic glioma
     Route: 065

REACTIONS (1)
  - Drug ineffective [Fatal]
